FAERS Safety Report 6703003-7 (Version None)
Quarter: 2010Q2

REPORT INFORMATION
  Report Type: 
  Country: None (occurrence: None)
  Receive Date: 20100429
  Receipt Date: 20100429
  Transmission Date: 20101027
  Serious: Yes (Other)
  Sender: FDA-Public Use
  Company Number: None

PATIENT
  Age: 11 Year
  Sex: Female
  Weight: 28.6 kg

DRUGS (5)
  1. VANCOMYCIN [Suspect]
     Indication: INFECTION
     Dosage: 480 MG IV OVER 1 HR Q8
     Route: 042
     Dates: start: 20090730
  2. CEFTRIAXONE [Concomitant]
  3. DOCUSATE [Concomitant]
  4. MORPHINE [Concomitant]
  5. ACETAMINOPHEN [Concomitant]

REACTIONS (2)
  - INFUSION RELATED REACTION [None]
  - PRURITUS GENERALISED [None]
